FAERS Safety Report 7966926-7 (Version None)
Quarter: 2011Q4

REPORT INFORMATION
  Report Type: 
  Country: None (occurrence: None)
  Receive Date: 20111209
  Receipt Date: 20111207
  Transmission Date: 20120403
  Serious: Yes (Death)
  Sender: FDA-Public Use
  Company Number: US-PFIZER INC-2011299511

PATIENT
  Age: 26 Year
  Sex: Male

DRUGS (3)
  1. METHADONE HCL [Suspect]
     Dosage: UNK
  2. XANAX [Suspect]
     Dosage: UNK
  3. NAPROXEN [Suspect]
     Dosage: UNK

REACTIONS (1)
  - TOXICITY TO VARIOUS AGENTS [None]
